FAERS Safety Report 4679191-3 (Version None)
Quarter: 2005Q2

REPORT INFORMATION
  Report Type: 
  Country: None (occurrence: None)
  Receive Date: 20050526
  Receipt Date: 20050202
  Transmission Date: 20051028
  Serious: Yes (Life-Threatening, Disabling)
  Sender: FDA-Public Use
  Company Number: WAES 0502USA00263

PATIENT
  Age: 54 Year
  Sex: Female

DRUGS (5)
  1. VYTORIN [Suspect]
     Indication: HYPERLIPIDAEMIA
     Dosage: 10-20 MG/DAILY/PO
     Route: 048
     Dates: start: 20050112, end: 20050201
  2. CELEBREX [Concomitant]
  3. CIPRO [Concomitant]
  4. (THERAPY UNSPECIFIED) [Concomitant]
  5. PREDNISONE [Concomitant]

REACTIONS (1)
  - MYALGIA [None]
